FAERS Safety Report 6040969-5 (Version None)
Quarter: 2009Q1

REPORT INFORMATION
  Report Type: 
  Country: None (occurrence: None)
  Receive Date: 20090116
  Receipt Date: 20080715
  Transmission Date: 20090719
  Serious: No
  Sender: FDA-Public Use
  Company Number: US-BRISTOL-MYERS SQUIBB COMPANY-14263982

PATIENT
  Age: 60 Year
  Sex: Male

DRUGS (5)
  1. ABILIFY [Suspect]
     Indication: PARANOIA
     Dates: start: 20040801, end: 20060901
  2. ABILIFY [Suspect]
     Indication: PSYCHOTIC DISORDER
     Dates: start: 20040801, end: 20060901
  3. ZOLOFT [Suspect]
  4. DEXEDRINE [Suspect]
  5. PRAZSOIN HCL [Suspect]

REACTIONS (1)
  - PARKINSONISM [None]
